FAERS Safety Report 7625513-0 (Version None)
Quarter: 2011Q3

REPORT INFORMATION
  Report Type: 
  Country: None (occurrence: None)
  Receive Date: 20110721
  Receipt Date: 20101101
  Transmission Date: 20111222
  Serious: Yes (Hospitalization)
  Sender: FDA-Public Use
  Company Number: US-KINGPHARMUSA00001-K201001340

PATIENT
  Age: 93 Year
  Sex: Female
  Weight: 77.1 kg

DRUGS (12)
  1. HUMULIN R [Concomitant]
     Indication: DIABETES MELLITUS
  2. INSULIN ISOPHANE [Concomitant]
     Indication: DIABETES MELLITUS
  3. SEPTRA [Suspect]
     Indication: CELLULITIS
     Dosage: 1 TABLET, TWICE A DAY
     Route: 048
     Dates: start: 20100830, end: 20100902
  4. INSULIN HUMAN [Concomitant]
     Indication: DIABETES MELLITUS
  5. ALBUTEROL SULATE [Concomitant]
     Indication: CHRONIC OBSTRUCTIVE PULMONARY DISEASE
  6. WARFARIN SODIUM [Concomitant]
     Indication: ATRIAL FIBRILLATION
  7. IPRATROPIUM BROMIDE [Concomitant]
     Indication: CHRONIC OBSTRUCTIVE PULMONARY DISEASE
  8. DILTIAZEM [Concomitant]
     Indication: ATRIAL FIBRILLATION
  9. BUDESONIDE [Concomitant]
     Indication: CHRONIC OBSTRUCTIVE PULMONARY DISEASE
  10. OXYGEN [Concomitant]
     Indication: CHRONIC OBSTRUCTIVE PULMONARY DISEASE
  11. LISINOPRIL [Concomitant]
     Indication: HYPERTENSION
  12. FUROSEMIDE [Concomitant]
     Indication: HYPERTENSION

REACTIONS (3)
  - HYPERKALAEMIA [None]
  - RENAL FAILURE ACUTE [None]
  - DRUG INEFFECTIVE [None]
